FAERS Safety Report 12788326 (Version 4)
Quarter: 2017Q2

REPORT INFORMATION
  Report Type: Spontaneous
  Country: ES (occurrence: ES)
  Receive Date: 20160928
  Receipt Date: 20170519
  Transmission Date: 20170830
  Serious: Yes (Hospitalization, Other)
  Sender: FDA-Public Use
  Company Number: ES-009507513-1609ESP009784

PATIENT
  Age: 65 Year
  Sex: Male
  Weight: 71 kg

DRUGS (6)
  1. AZILECT [Concomitant]
     Active Substance: RASAGILINE MESYLATE
     Indication: PARKINSON^S DISEASE
     Dosage: UNK
     Dates: end: 20150115
  2. ENALAPRIL MALEATE. [Concomitant]
     Active Substance: ENALAPRIL MALEATE
     Dosage: TOTAL DAILY DOSAGE:10MG
     Route: 048
     Dates: start: 20140117, end: 20150130
  3. SINEMET PLUS 25/100 MG (IR) [Suspect]
     Active Substance: CARBIDOPA\LEVODOPA
     Indication: PARKINSON^S DISEASE
     Dosage: 1/12 HOURS
     Route: 048
     Dates: start: 201408, end: 20150115
  4. SINEMET PLUS 25/100 MG (IR) [Suspect]
     Active Substance: CARBIDOPA\LEVODOPA
     Dosage: 1/12 HOURS
     Route: 048
     Dates: start: 20150117, end: 20150130
  5. AZILECT [Concomitant]
     Active Substance: RASAGILINE MESYLATE
     Dosage: UNK
     Dates: start: 20150117, end: 20150130
  6. ENALAPRIL MALEATE. [Concomitant]
     Active Substance: ENALAPRIL MALEATE
     Indication: HYPERTENSION
     Dosage: TOTAL DAILY DOSAGE:10MG
     Route: 048
     Dates: start: 201401, end: 20150115

REACTIONS (6)
  - Inguinal hernia [Unknown]
  - Erythema multiforme [Recovered/Resolved]
  - Perineal erythema [Recovered/Resolved]
  - Balanoposthitis [Recovered/Resolved]
  - Inflammation [Recovered/Resolved]
  - Musculoskeletal stiffness [Unknown]

NARRATIVE: CASE EVENT DATE: 20150116
